FAERS Safety Report 17147749 (Version 1)
Quarter: 2019Q4

REPORT INFORMATION
  Report Type: Spontaneous
  Country: LT (occurrence: LT)
  Receive Date: 20191212
  Receipt Date: 20191212
  Transmission Date: 20200122
  Serious: Yes (Hospitalization)
  Sender: FDA-Public Use
  Company Number: LT-MYLANLABS-2019M1068568

PATIENT
  Age: 21 Year
  Sex: Female

DRUGS (10)
  1. AMOXICLAV [Concomitant]
     Active Substance: AMOXICILLIN\CLAVULANATE POTASSIUM
     Indication: PYREXIA
     Dosage: 1500 MILLIGRAM
  2. AMITRIPTYLINE [Suspect]
     Active Substance: AMITRIPTYLINE
     Indication: AUTONOMIC NERVOUS SYSTEM IMBALANCE
  3. PROPRANOLOL [Concomitant]
     Active Substance: PROPRANOLOL HYDROCHLORIDE
     Indication: HYPERTENSION
     Dosage: 40 MILLIGRAM, QD
  4. CIPROFLOXACIN. [Concomitant]
     Active Substance: CIPROFLOXACIN
     Indication: PYREXIA
     Dosage: 1000 MILLIGRAM
  5. AMITRIPTYLINE [Suspect]
     Active Substance: AMITRIPTYLINE
     Indication: BLOOD PRESSURE INCREASED
  6. PREGABALIN. [Suspect]
     Active Substance: PREGABALIN
     Indication: BLOOD PRESSURE INCREASED
     Dosage: 150 MILLIGRAM, QD
  7. AMOXICLAV [Concomitant]
     Active Substance: AMOXICILLIN\CLAVULANATE POTASSIUM
     Indication: LEUKOCYTOSIS
  8. AMITRIPTYLINE [Suspect]
     Active Substance: AMITRIPTYLINE
     Indication: SOMATIC SYMPTOM DISORDER
     Dosage: 100 MILLIGRAM, QD
  9. PREDNISOLONE. [Suspect]
     Active Substance: PREDNISOLONE
     Indication: CHRONIC SINUSITIS
     Dosage: 20 MILLIGRAM, QD
  10. PREDNISOLONE. [Concomitant]
     Active Substance: PREDNISOLONE
     Indication: PRODUCT USED FOR UNKNOWN INDICATION
     Dosage: UNK

REACTIONS (21)
  - Adrenal insufficiency [Unknown]
  - Somnolence [Unknown]
  - Helplessness [Unknown]
  - Hypoaesthesia [Unknown]
  - Fibromyalgia [Unknown]
  - Arthropathy [Unknown]
  - Adrenal suppression [Unknown]
  - Hyperhidrosis [Unknown]
  - Pain [Unknown]
  - Tremor [Unknown]
  - Peripheral coldness [Unknown]
  - Product use in unapproved indication [Unknown]
  - Movement disorder [Unknown]
  - Cushing^s syndrome [Not Recovered/Not Resolved]
  - Pyrexia [Not Recovered/Not Resolved]
  - Asthenia [Unknown]
  - Irritable bowel syndrome [Unknown]
  - Intentional product misuse [Unknown]
  - Gait disturbance [Unknown]
  - Leukocytosis [Unknown]
  - Hypertension [Unknown]
